FAERS Safety Report 5563537-8 (Version None)
Quarter: 2007Q4

REPORT INFORMATION
  Report Type: 
  Country: None (occurrence: None)
  Receive Date: 20071217
  Receipt Date: 20070801
  Transmission Date: 20080405
  Serious: No
  Sender: FDA-Public Use
  Company Number: US-ASTRAZENECA-2007UW14970

PATIENT
  Age: 74 Year
  Sex: Female
  Weight: 65.3 kg

DRUGS (5)
  1. CRESTOR [Suspect]
     Route: 048
     Dates: start: 20070621, end: 20070621
  2. ARIMIDEX [Concomitant]
  3. ASPIRIN [Concomitant]
  4. LORAZEPAM [Concomitant]
  5. ZETIA [Concomitant]

REACTIONS (1)
  - CONTUSION [None]
